FAERS Safety Report 7937134-0 (Version None)
Quarter: 2011Q4

REPORT INFORMATION
  Report Type: 
  Country: None (occurrence: None)
  Receive Date: 20111123
  Receipt Date: 20111114
  Transmission Date: 20120403
  Serious: Yes (Hospitalization, Other)
  Sender: FDA-Public Use
  Company Number: US-BAYER-201039639NA

PATIENT
  Age: 29 Year
  Sex: Female

DRUGS (13)
  1. ADIPEX [Concomitant]
     Dosage: UNK
     Route: 048
     Dates: start: 20070401
  2. ALLEGRA [Concomitant]
     Dosage: DAILY DOSE 180 MG
     Route: 048
  3. FLONASE [Concomitant]
     Dosage: DAILY DOSE 100 ?G
  4. ZANTAC [Concomitant]
     Dosage: 150 MG, BID
     Route: 048
  5. MACROBID [Concomitant]
     Dosage: DAILY DOSE 100 MG
     Route: 048
  6. YASMIN [Suspect]
     Indication: PELVIC PAIN
  7. ALBUTEROL [Concomitant]
     Dosage: 2 PUFF(S), PRN
     Route: 055
  8. MOTRIN [Concomitant]
     Dosage: 600 MG, PRN
     Route: 048
  9. YASMIN [Suspect]
     Indication: CONTRACEPTION
     Dosage: UNK
     Route: 048
     Dates: start: 20040501, end: 20070601
  10. HYDROXYZINE [Concomitant]
     Dosage: 25 MG, HS
     Route: 048
  11. TYLENOL W/ CODEINE NO. 3 [Concomitant]
     Dosage: UNK UNK, PRN
     Route: 048
  12. MULTI-VITAMINS [Concomitant]
     Dosage: UNK UNK, QD
     Route: 048
  13. NEURONTIN [Concomitant]
     Dosage: DAILY DOSE 600 MG
     Route: 048

REACTIONS (3)
  - THROMBOSIS [None]
  - PULMONARY EMBOLISM [None]
  - ARTERIAL THROMBOSIS LIMB [None]
